FAERS Safety Report 13736124 (Version 4)
Quarter: 2017Q4

REPORT INFORMATION
  Report Type: Report from Study
  Country: None (occurrence: US)
  Receive Date: 20170710
  Receipt Date: 20171109
  Transmission Date: 20180320
  Serious: Yes (Other)
  Sender: FDA-Public Use
  Company Number: US-ABBVIE-17K-163-2032362-00

PATIENT
  Sex: Female

DRUGS (2)
  1. HUMIRA [Suspect]
     Active Substance: ADALIMUMAB
     Indication: RHEUMATOID ARTHRITIS
     Route: 058
     Dates: start: 2013
  2. HUMIRA [Suspect]
     Active Substance: ADALIMUMAB
     Route: 058
     Dates: end: 2017

REACTIONS (17)
  - Knee arthroplasty [Recovered/Resolved]
  - Drug ineffective [Recovered/Resolved]
  - Back pain [Unknown]
  - Injection site pain [Recovered/Resolved with Sequelae]
  - Muscular weakness [Not Recovered/Not Resolved]
  - Joint swelling [Not Recovered/Not Resolved]
  - Atypical pneumonia [Recovered/Resolved]
  - Therapeutic response shortened [Unknown]
  - Hernia [Recovering/Resolving]
  - Neuralgia [Not Recovered/Not Resolved]
  - Rheumatoid arthritis [Recovering/Resolving]
  - Muscle spasms [Unknown]
  - Injection site haemorrhage [Recovered/Resolved]
  - Depression [Unknown]
  - Insomnia [Unknown]
  - Anger [Unknown]
  - Injection site pain [Recovered/Resolved]

NARRATIVE: CASE EVENT DATE: 2013
